FAERS Safety Report 11337945 (Version 2)
Quarter: 2015Q3

REPORT INFORMATION
  Report Type: Spontaneous
  Country: US (occurrence: US)
  Receive Date: 20150803
  Receipt Date: 20150831
  Transmission Date: 20151125
  Serious: Yes (Hospitalization, Other)
  Sender: FDA-Public Use
  Company Number: US-ELI_LILLY_AND_COMPANY-US201003007817

PATIENT
  Sex: Male

DRUGS (12)
  1. ISODIL [Concomitant]
  2. PROCRIT [Concomitant]
     Active Substance: ERYTHROPOIETIN
  3. ZYPREXA [Suspect]
     Active Substance: OLANZAPINE
     Dosage: 5 MG, UNK
  4. CYMBALTA [Suspect]
     Active Substance: DULOXETINE HYDROCHLORIDE
     Indication: MAJOR DEPRESSION
     Dosage: 20 MG, UNK
  5. CYMBALTA [Suspect]
     Active Substance: DULOXETINE HYDROCHLORIDE
     Dosage: 30 MG, UNK
  6. PROCARDIA [Concomitant]
     Active Substance: NIFEDIPINE
  7. LASIX [Concomitant]
     Active Substance: FUROSEMIDE
  8. COREG [Concomitant]
     Active Substance: CARVEDILOL
  9. FLOMAX [Concomitant]
     Active Substance: TAMSULOSIN HYDROCHLORIDE
  10. NEXIUM [Concomitant]
     Active Substance: ESOMEPRAZOLE MAGNESIUM
  11. HALDOL [Concomitant]
     Active Substance: HALOPERIDOL
  12. LANTUS [Concomitant]
     Active Substance: INSULIN GLARGINE

REACTIONS (2)
  - Hepatitis C [Unknown]
  - Seizure [Unknown]
